FAERS Safety Report 20058770 (Version 1)
Quarter: 2021Q4

REPORT INFORMATION
  Report Type: Spontaneous
  Country: None (occurrence: US)
  Receive Date: 20211111
  Receipt Date: 20211111
  Transmission Date: 20220304
  Serious: No
  Sender: FDA-Public Use
  Company Number: US-Breckenridge Pharmaceutical, Inc.-2121755

PATIENT
  Age: 56 Year
  Sex: Female
  Weight: 100 kg

DRUGS (1)
  1. ALPRAZOLAM [Suspect]
     Active Substance: ALPRAZOLAM
     Indication: Anxiety
     Route: 048

REACTIONS (6)
  - Ophthalmic migraine [Unknown]
  - Hallucination [Unknown]
  - Insomnia [Unknown]
  - Nausea [Unknown]
  - Migraine [Unknown]
  - Therapeutic product ineffective [Unknown]
